FAERS Safety Report 12955394 (Version 1)
Quarter: 2016Q4

REPORT INFORMATION
  Report Type: Spontaneous
  Country: US (occurrence: US)
  Receive Date: 20161118
  Receipt Date: 20161118
  Transmission Date: 20170207
  Serious: No
  Sender: FDA-Public Use
  Company Number: US-PERRIGO-16US016574

PATIENT
  Age: 1 Year
  Sex: Female
  Weight: 13.15 kg

DRUGS (2)
  1. POLYETHYLENE GLYCOL 3350. [Suspect]
     Active Substance: POLYETHYLENE GLYCOL 3350
     Dosage: 4 G, BID
     Route: 048
     Dates: start: 20160509, end: 20160523
  2. POLYETHYLENE GLYCOL 3350. [Suspect]
     Active Substance: POLYETHYLENE GLYCOL 3350
     Indication: CONSTIPATION
     Dosage: 4 G, BID
     Route: 048
     Dates: start: 2015, end: 20160508

REACTIONS (4)
  - Exposure to unspecified agent [Recovered/Resolved]
  - Vomiting [Recovered/Resolved]
  - Drug administered to patient of inappropriate age [Recovered/Resolved]
  - Incorrect drug administration duration [Recovered/Resolved]

NARRATIVE: CASE EVENT DATE: 2015
